FAERS Safety Report 12525455 (Version 2)
Quarter: 2016Q3

REPORT INFORMATION
  Report Type: Spontaneous
  Country: US (occurrence: US)
  Receive Date: 20160704
  Receipt Date: 20160907
  Transmission Date: 20161109
  Serious: No
  Sender: FDA-Public Use
  Company Number: US-ASTRAZENECA-2016SE57359

PATIENT
  Sex: Male

DRUGS (1)
  1. SYMBICORT [Suspect]
     Active Substance: BUDESONIDE\FORMOTEROL FUMARATE DIHYDRATE
     Dosage: 80/4.5 2 PUFFS TWICE DAILY
     Route: 055
     Dates: start: 2016

REACTIONS (4)
  - Product quality issue [Unknown]
  - Intentional product misuse [Unknown]
  - Throat irritation [Unknown]
  - Drug dose omission [Unknown]
